FAERS Safety Report 7636924-1 (Version None)
Quarter: 2011Q3

REPORT INFORMATION
  Report Type: 
  Country: None (occurrence: None)
  Receive Date: 20110722
  Receipt Date: 20110722
  Transmission Date: 20111222
  Serious: No
  Sender: FDA-Public Use
  Company Number: None

PATIENT
  Age: 90 Year
  Sex: Male
  Weight: 90.7 kg

DRUGS (1)
  1. ERTAPENEM [Suspect]
     Dosage: 500 MG EVERY DAY IM
     Route: 030
     Dates: start: 20110601, end: 20110608

REACTIONS (1)
  - DIARRHOEA [None]
